FAERS Safety Report 4677904-8 (Version None)
Quarter: 2005Q2

REPORT INFORMATION
  Report Type: 
  Country: None (occurrence: None)
  Receive Date: 20050531
  Receipt Date: 20050527
  Transmission Date: 20051028
  Serious: Yes (Hospitalization)
  Sender: FDA-Public Use
  Company Number: FR-GLAXOSMITHKLINE-B0382527A

PATIENT
  Age: 35 Year
  Sex: Female

DRUGS (5)
  1. CLAMOXYL [Suspect]
     Indication: BETA HAEMOLYTIC STREPTOCOCCAL INFECTION
     Dosage: 1G THREE TIMES PER DAY
     Route: 048
     Dates: start: 20050120, end: 20050125
  2. POLYGYNAX [Concomitant]
     Route: 067
     Dates: start: 20050120, end: 20050125
  3. RHINADVIL [Concomitant]
     Indication: NASOPHARYNGITIS
     Route: 065
     Dates: start: 20050126
  4. DERINOX [Concomitant]
     Indication: NASOPHARYNGITIS
     Route: 065
     Dates: start: 20050126
  5. CARBOCISTEINE [Concomitant]
     Indication: NASOPHARYNGITIS
     Route: 048
     Dates: start: 20050126

REACTIONS (6)
  - ABDOMINAL PAIN [None]
  - ANGIONEUROTIC OEDEMA [None]
  - ERYTHEMA [None]
  - RASH [None]
  - SKIN TEST POSITIVE [None]
  - URTICARIA [None]
